FAERS Safety Report 9058834 (Version 2)
Quarter: 2013Q1

REPORT INFORMATION
  Report Type: Spontaneous
  Country: US (occurrence: US)
  Receive Date: 20130204
  Receipt Date: 20130211
  Transmission Date: 20140127
  Serious: Yes (Hospitalization, Other)
  Sender: FDA-Public Use
  Company Number: US-ROCHE-785523

PATIENT
  Sex: Male

DRUGS (2)
  1. ACCUTANE [Suspect]
     Indication: ACNE
     Route: 065
     Dates: start: 1995, end: 1996
  2. ACCUTANE [Suspect]
     Route: 065
     Dates: start: 19950203, end: 199507

REACTIONS (4)
  - Anal abscess [Unknown]
  - Anal fistula [Unknown]
  - Crohn^s disease [Unknown]
  - Inflammatory bowel disease [Unknown]
